FAERS Safety Report 11144708 (Version 1)
Quarter: 2015Q2

REPORT INFORMATION
  Report Type: Spontaneous
  Country: US (occurrence: None)
  Receive Date: 20150526
  Receipt Date: 20150526
  Transmission Date: 20150821
  Serious: Yes (Hospitalization)
  Sender: FDA-Public Use
  Company Number: HA15-131-AE

PATIENT
  Age: 46 Year
  Sex: Female
  Weight: 78.93 kg

DRUGS (8)
  1. NAPROXEN (NAPROSYN) [Concomitant]
  2. PLAQUENIL [Concomitant]
     Active Substance: HYDROXYCHLOROQUINE SULFATE
  3. ACETAMINOPHEN AND CODEINE [Suspect]
     Active Substance: ACETAMINOPHEN\CODEINE PHOSPHATE
     Indication: FIBROMYALGIA
     Dosage: THERAPY DATES:  10/30/14 - AFT 1 MONTH, 1 TABLET BID, ORAL
     Route: 048
     Dates: start: 20141030
  4. ESTRADIOL. [Concomitant]
     Active Substance: ESTRADIOL
  5. UNKNOWN SLEEPING MEDICATION [Concomitant]
  6. UNKNOWN CREAM FOR ITCHING [Concomitant]
  7. LYRICA [Concomitant]
     Active Substance: PREGABALIN
  8. PAROXETINE [Concomitant]
     Active Substance: PAROXETINE\PAROXETINE HYDROCHLORIDE

REACTIONS (6)
  - Fall [None]
  - Pain [None]
  - Drug ineffective [None]
  - Incoherent [None]
  - Unable to afford prescribed medication [None]
  - Feeling abnormal [None]

NARRATIVE: CASE EVENT DATE: 20141030
